FAERS Safety Report 8281498-8 (Version None)
Quarter: 2012Q2

REPORT INFORMATION
  Report Type: 
  Country: None (occurrence: None)
  Receive Date: 20120410
  Receipt Date: 20120330
  Transmission Date: 20120825
  Serious: Yes (Congenital Anomaly, Other)
  Sender: FDA-Public Use
  Company Number: AUR-APL-2012-01512

PATIENT
  Age: 0 Year
  Sex: Female
  Weight: 3.32 kg

DRUGS (2)
  1. FOLSAURE SANDOZ (FOLIC ACID) [Concomitant]
  2. LAMOTRIGINE [Suspect]
     Indication: BIPOLAR DISORDER
     Dosage: (350 MG, 1 D), TRANSPLACENTAL
     Route: 064
     Dates: start: 20101213

REACTIONS (4)
  - EXPOSURE DURING BREAST FEEDING [None]
  - MATERNAL DRUGS AFFECTING FOETUS [None]
  - HIP DYSPLASIA [None]
  - HAEMANGIOMA [None]
